FAERS Safety Report 25649637 (Version 2)
Quarter: 2025Q3

REPORT INFORMATION
  Report Type: Spontaneous
  Country: US (occurrence: US)
  Receive Date: 20250806
  Receipt Date: 20250825
  Transmission Date: 20251020
  Serious: No
  Sender: CALLIDITAS THERAPEUTICS AB
  Company Number: US-Calliditas-2025CAL02161

PATIENT
  Age: 67 Year
  Sex: Male

DRUGS (9)
  1. TARPEYO [Suspect]
     Active Substance: BUDESONIDE
     Indication: IgA nephropathy
     Route: 048
     Dates: start: 20250607
  2. FEXOFENADINE [Concomitant]
     Active Substance: FEXOFENADINE HYDROCHLORIDE
  3. ASPIRIN [Concomitant]
     Active Substance: ASPIRIN
  4. ROSUVASTATIN [Concomitant]
     Active Substance: ROSUVASTATIN
  5. FLUTICASONE [Concomitant]
     Active Substance: FLUTICASONE
  6. VALACYCLOVIR [Concomitant]
     Active Substance: VALACYCLOVIR HYDROCHLORIDE
  7. PANTOPRAZOLE [Concomitant]
     Active Substance: PANTOPRAZOLE
  8. LOSARTAN [Concomitant]
     Active Substance: LOSARTAN
  9. BRENZAVVY [Concomitant]
     Active Substance: BEXAGLIFLOZIN

REACTIONS (13)
  - Psychomotor hyperactivity [Not Recovered/Not Resolved]
  - Sleep disorder [Not Recovered/Not Resolved]
  - COVID-19 [Recovered/Resolved]
  - Weight decreased [Unknown]
  - Nocturia [Unknown]
  - Insomnia [Unknown]
  - Irritability [Unknown]
  - Acne [Unknown]
  - Pruritus [Unknown]
  - Muscle spasms [Unknown]
  - Blood calcium decreased [Unknown]
  - Dyspepsia [Recovered/Resolved]
  - Bronchitis [Unknown]

NARRATIVE: CASE EVENT DATE: 20250723
